FAERS Safety Report 14935748 (Version 2)
Quarter: 2018Q3

REPORT INFORMATION
  Report Type: Spontaneous
  Country: IT (occurrence: IT)
  Receive Date: 20180524
  Receipt Date: 20180730
  Transmission Date: 20181010
  Serious: Yes (Other)
  Sender: FDA-Public Use
  Company Number: PHHY2017IT163992

PATIENT

DRUGS (1)
  1. CILODEX OTIC (ALC) [Suspect]
     Active Substance: CIPROFLOXACIN\DEXAMETHASONE
     Route: 001

REACTIONS (7)
  - Peripheral swelling [Unknown]
  - Dermatitis acneiform [Unknown]
  - Hypertension [Unknown]
  - Discomfort [Unknown]
  - Respiratory disorder [Unknown]
  - Cataract [Unknown]
  - Dizziness [Unknown]
